FAERS Safety Report 5888677-5 (Version None)
Quarter: 2008Q3

REPORT INFORMATION
  Report Type: 
  Country: None (occurrence: None)
  Receive Date: 20080916
  Receipt Date: 20080908
  Transmission Date: 20090109
  Serious: Yes (Disabling, Other)
  Sender: FDA-Public Use
  Company Number: 2008SS000032

PATIENT

DRUGS (2)
  1. BOTULINUM TOXIN TYPE B (BOTULINUM TOXIN TYPE B) [Suspect]
     Indication: MUSCLE SPASTICITY
     Dosage: IM
     Route: 030
  2. BOTULINUM TOXIN TYPE B (BOTULINUM TOXIN TYPE B) [Suspect]
     Indication: OFF LABEL USE
     Dosage: IM
     Route: 030

REACTIONS (3)
  - MUSCLE INJURY [None]
  - OFF LABEL USE [None]
  - STRABISMUS [None]
